FAERS Safety Report 8454304-6 (Version None)
Quarter: 2012Q2

REPORT INFORMATION
  Report Type: 
  Country: None (occurrence: None)
  Receive Date: 20120620
  Receipt Date: 20120423
  Transmission Date: 20120825
  Serious: Yes (Hospitalization)
  Sender: FDA-Public Use
  Company Number: PHHO2007KR13971

PATIENT
  Sex: Female
  Weight: 63 kg

DRUGS (1)
  1. EXJADE [Suspect]
     Indication: APLASTIC ANAEMIA
     Dosage: 10 MG/KG, UNK
     Route: 048
     Dates: start: 20070615

REACTIONS (2)
  - DIARRHOEA [None]
  - PNEUMONIA [None]
